FAERS Safety Report 17782471 (Version 1)
Quarter: 2020Q2

REPORT INFORMATION
  Report Type: Spontaneous
  Country: DE (occurrence: DE)
  Receive Date: 20200514
  Receipt Date: 20200514
  Transmission Date: 20200714
  Serious: Yes (Hospitalization)
  Sender: FDA-Public Use
  Company Number: DE-TEVA-2020-DE-1234554

PATIENT
  Age: 54 Year
  Sex: Female
  Weight: 59 kg

DRUGS (5)
  1. PREGABALIN. [Suspect]
     Active Substance: PREGABALIN
     Dosage: 150 MILLIGRAM DAILY; 1-0-1-0
  2. PANTOPRAZOL [Concomitant]
     Active Substance: PANTOPRAZOLE SODIUM
     Dosage: 20 MILLIGRAM DAILY; 1-0-0-0
  3. IBUPROFEN. [Concomitant]
     Active Substance: IBUPROFEN
     Dosage: NEED
     Route: 065
  4. LAMOTRIGINE. [Suspect]
     Active Substance: LAMOTRIGINE
     Dosage: 1.5 DOSAGE FORMS DAILY; 100 MG, 0.5-0.5-0.5-0
  5. BETAHISTIN [Suspect]
     Active Substance: BETAHISTINE
     Dosage: 36 MILLIGRAM DAILY; 1-1-1-0

REACTIONS (5)
  - Nausea [Unknown]
  - Vomiting [Unknown]
  - Weight decreased [Unknown]
  - Cerebellar ataxia [Unknown]
  - Decreased appetite [Unknown]
